FAERS Safety Report 8775218 (Version 1)
Quarter: 2012Q4

REPORT INFORMATION
  Report Type: 
  Country: BR (occurrence: BR)
  Receive Date: 20120910
  Receipt Date: 20120910
  Transmission Date: 20130627
  Serious: Yes (Other)
  Sender: FDA-Public Use
  Company Number: BR-AMGEN-BRASP2012056219

PATIENT
  Age: 47 Year
  Sex: Female
  Weight: 58 kg

DRUGS (5)
  1. ENBREL [Suspect]
     Indication: RHEUMATOID ARTHRITIS
     Dosage: 50 mg, 1x/week
     Route: 058
     Dates: start: 201110
  2. METHOTREXATE [Concomitant]
     Dosage: UNK
  3. SOMALGIN [Concomitant]
     Dosage: UNK UNK, UNK
  4. BENICAR [Concomitant]
     Dosage: UNK UNK, UNK
  5. CONCOR [Concomitant]
     Dosage: UNK UNK, UNK

REACTIONS (5)
  - Infarction [Unknown]
  - Pain in extremity [Unknown]
  - Arthralgia [Unknown]
  - Gait disturbance [Unknown]
  - Bone deformity [Unknown]
